FAERS Safety Report 5727720-0 (Version None)
Quarter: 2008Q2

REPORT INFORMATION
  Report Type: 
  Country: None (occurrence: None)
  Receive Date: 20080505
  Receipt Date: 20080423
  Transmission Date: 20081010
  Serious: Yes (Hospitalization)
  Sender: FDA-Public Use
  Company Number: SK-ROCHE-395353

PATIENT
  Sex: Male
  Weight: 61 kg

DRUGS (4)
  1. PEGASYS [Suspect]
     Route: 058
     Dates: start: 20040709, end: 20050121
  2. RIBAVIRIN [Suspect]
     Route: 048
     Dates: start: 20040709, end: 20050121
  3. ESSENTIALE [Concomitant]
  4. ESSENTIALE [Concomitant]

REACTIONS (1)
  - PSYCHOTIC DISORDER [None]
